FAERS Safety Report 18808673 (Version 1)
Quarter: 2021Q1

REPORT INFORMATION
  Report Type: Report from Study
  Country: CA (occurrence: CA)
  Receive Date: 20210129
  Receipt Date: 20210129
  Transmission Date: 20210419
  Serious: Yes (Other)
  Sender: FDA-Public Use
  Company Number: CA-REGENERON PHARMACEUTICALS, INC.-2021-16415

PATIENT

DRUGS (1)
  1. EYLEA [Suspect]
     Active Substance: AFLIBERCEPT
     Indication: DIABETIC RETINAL OEDEMA
     Dosage: UNK; TOTAL DOSE OF EYLEA PRIOR TO THE EVENT IS UNKNOWN. DATE OF LAST EYLEA INJECTION PRIOR TO THE EV
     Route: 031

REACTIONS (1)
  - Eye haemorrhage [Unknown]
